FAERS Safety Report 7516002-2 (Version None)
Quarter: 2011Q2

REPORT INFORMATION
  Report Type: 
  Country: None (occurrence: None)
  Receive Date: 20110601
  Receipt Date: 20110502
  Transmission Date: 20111010
  Serious: Yes (Other)
  Sender: FDA-Public Use
  Company Number: US-BAYER-2011-011881

PATIENT
  Sex: Female
  Weight: 89.796 kg

DRUGS (10)
  1. YAZ [Suspect]
     Indication: PRODUCT USED FOR UNKNOWN INDICATION
     Dosage: UNK
     Dates: start: 20081001, end: 20100323
  2. ASCORBIC ACID [Concomitant]
     Dosage: UNK
     Dates: start: 20030101
  3. NORTRIPTYLINE HCL [Concomitant]
  4. PROAIR HFA [Concomitant]
     Indication: ASTHMA
     Dosage: UNK
     Dates: start: 20070101
  5. CIPRO [Concomitant]
     Dosage: UNK
     Dates: start: 20090910
  6. ZOFRAN [Concomitant]
     Dosage: UNK
     Dates: start: 20090724
  7. INDERAL [Concomitant]
     Indication: MIGRAINE
     Dosage: UNK
     Dates: start: 20010101
  8. ANTIBIOTICS [Concomitant]
     Dosage: UNK UNK, PRN
     Dates: start: 20000101
  9. PROTONIX [Concomitant]
     Dosage: UNK
     Dates: start: 20090724
  10. PAMELOR [Concomitant]
     Dosage: 25 MG, UNK
     Dates: start: 20090810

REACTIONS (6)
  - GALLBLADDER CHOLESTEROLOSIS [None]
  - GALLBLADDER DISORDER [None]
  - CHOLECYSTITIS CHRONIC [None]
  - INJURY [None]
  - BILIARY DYSKINESIA [None]
  - PAIN [None]
